FAERS Safety Report 10040686 (Version 1)
Quarter: 2014Q1

REPORT INFORMATION
  Report Type: Report from Study
  Country: CO (occurrence: CO)
  Receive Date: 20140327
  Receipt Date: 20140327
  Transmission Date: 20141002
  Serious: Yes (Hospitalization)
  Sender: FDA-Public Use
  Company Number: CO-SA-2014SA033826

PATIENT
  Age: 63 Year
  Sex: Male

DRUGS (8)
  1. LANTUS [Suspect]
     Indication: DIABETES MELLITUS
     Dosage: DOSE:45 UNIT(S)
     Route: 058
     Dates: start: 2008
  2. INSULIN ASPART [Suspect]
     Indication: DIABETES MELLITUS
     Dosage: DOSE: 5 UNITS, 8 UNITS AND 2 UNITS
     Route: 058
     Dates: start: 2008, end: 20140308
  3. ATORVASTATIN [Concomitant]
     Indication: DYSLIPIDAEMIA
     Route: 048
  4. LOSARTAN [Concomitant]
     Indication: HYPERTENSION
     Route: 048
  5. AMLODIPINE [Concomitant]
     Indication: HYPERTENSION
     Route: 048
  6. FOLIC ACID [Concomitant]
     Indication: RENAL FAILURE CHRONIC
     Route: 048
  7. CARVEDILOL [Concomitant]
     Indication: MYOCARDIAL ISCHAEMIA
     Route: 048
  8. METHOCARBAMOL [Concomitant]
     Indication: PAIN
     Route: 048

REACTIONS (1)
  - Diabetic foot [Not Recovered/Not Resolved]
